FAERS Safety Report 4956377-1 (Version None)
Quarter: 2006Q1

REPORT INFORMATION
  Report Type: 
  Country: None (occurrence: None)
  Receive Date: 20060323
  Receipt Date: 20060310
  Transmission Date: 20060701
  Serious: Yes (Hospitalization)
  Sender: FDA-Public Use
  Company Number: 2006035516

PATIENT
  Age: 62 Year
  Sex: Male

DRUGS (2)
  1. CAMPTOSAR [Suspect]
     Indication: COLON CANCER METASTATIC
     Dosage: INTRAVENOUS
     Route: 042
     Dates: start: 20050614, end: 20060116
  2. CETUXIMAB CETUXIMAB) [Suspect]
     Indication: COLON CANCER METASTATIC
     Dosage: INTRAVENOUS
     Route: 042
     Dates: start: 20050614, end: 20060116

REACTIONS (7)
  - ACNE [None]
  - CONDITION AGGRAVATED [None]
  - METASTATIC NEOPLASM [None]
  - NAIL DISORDER [None]
  - ONYCHOLYSIS [None]
  - PARONYCHIA [None]
  - PRURITUS [None]
